FAERS Safety Report 7931303-1 (Version None)
Quarter: 2011Q4

REPORT INFORMATION
  Report Type: 
  Country: None (occurrence: None)
  Receive Date: 20111121
  Receipt Date: 20111111
  Transmission Date: 20120403
  Serious: Yes (Hospitalization, Other)
  Sender: FDA-Public Use
  Company Number: US-BAYER-201012533NA

PATIENT
  Age: 60 Year
  Sex: Female
  Weight: 70.295 kg

DRUGS (32)
  1. METOPROLOL TARTRATE [Concomitant]
     Indication: HYPERTENSION
     Dosage: UNK
     Dates: start: 20040101
  2. ATROVENT [Concomitant]
  3. GABAPENTIN [Concomitant]
     Indication: NEUROPATHY PERIPHERAL
     Dosage: UNK
     Dates: start: 20040421
  4. OMEPRAZOLE [Concomitant]
     Indication: GASTROOESOPHAGEAL REFLUX DISEASE
     Dosage: UNK
     Dates: start: 20060101
  5. ASCORBIC ACID [Concomitant]
  6. AMITRIPTYLINE HCL [Concomitant]
     Indication: ANTIDEPRESSANT THERAPY
     Dosage: UNK
     Dates: start: 20050609
  7. NEUTRA-PHOS [Concomitant]
  8. TRIAMTERENE [Concomitant]
     Dosage: UNK
     Dates: start: 20060808, end: 20070808
  9. NIASPAN [Concomitant]
     Indication: BLOOD CHOLESTEROL INCREASED
     Dosage: UNK
     Dates: start: 20030411
  10. CEPHALEXIN [Concomitant]
     Dosage: UNK
     Dates: start: 20030618
  11. IBUPROFEN [Concomitant]
     Dosage: UNK
     Dates: start: 20040101
  12. PRILOSEC [Concomitant]
     Indication: GASTROOESOPHAGEAL REFLUX DISEASE
     Dosage: UNK
     Dates: start: 20050609
  13. POTASSIUM CHLORIDE [Concomitant]
  14. XOPENEX [Concomitant]
  15. SYNTHROID [Concomitant]
     Indication: HYPOTHYROIDISM
     Dosage: UNK
     Dates: start: 20050101
  16. CIPROFLOXACIN [Concomitant]
     Dosage: UNK
     Dates: start: 20050224
  17. AMPICILLIN [Concomitant]
     Dosage: UNK
     Dates: start: 20060725
  18. FISH OIL [Concomitant]
  19. MEDROXYPROGESTERONE [Concomitant]
  20. LISINOPRIL [Concomitant]
     Dosage: UNK
     Dates: start: 20031110
  21. LOVASTATIN [Concomitant]
     Indication: BLOOD CHOLESTEROL INCREASED
  22. LORAZEPAM [Concomitant]
     Dosage: UNK
     Dates: start: 20060323
  23. NEXIUM [Concomitant]
  24. VICODIN [Concomitant]
  25. AMBIEN [Concomitant]
  26. YAZ [Suspect]
     Indication: VAGINAL HAEMORRHAGE
     Dosage: 1 DF (DAILY DOSE), QD, ORAL
     Route: 048
     Dates: start: 20080415, end: 20080508
  27. BACLOFEN [Concomitant]
     Indication: MUSCLE SPASMS
     Dosage: UNK
     Dates: start: 20060128
  28. LORAZEPAM [Concomitant]
     Indication: ANXIETY
     Dosage: UNK
     Dates: start: 20050817
  29. NEURONTIN [Concomitant]
     Indication: NEUROPATHY PERIPHERAL
     Dosage: UNK
     Dates: start: 20030101
  30. ALPRAZOLAM [Concomitant]
     Indication: ANXIETY
     Dosage: UNK
     Dates: start: 20030723
  31. ASPIRIN [Concomitant]
  32. MAGNESIUM OXIDE [Concomitant]

REACTIONS (7)
  - CEREBROVASCULAR ACCIDENT [None]
  - CARDIAC ARREST [None]
  - RESPIRATORY FAILURE [None]
  - PULMONARY EMBOLISM [None]
  - DEEP VEIN THROMBOSIS [None]
  - INJURY [None]
  - MUSCULOSKELETAL DISORDER [None]
